FAERS Safety Report 4550256-X (Version None)
Quarter: 2004Q4

REPORT INFORMATION
  Report Type: 
  Country: None (occurrence: None)
  Receive Date: 20041227
  Receipt Date: 20041112
  Transmission Date: 20050328
  Serious: No
  Sender: FDA-Public Use
  Company Number: 04P-163-0280486-00

PATIENT
  Age: 44 Year
  Sex: Female
  Weight: 60.782 kg

DRUGS (13)
  1. HUMIRA [Suspect]
     Indication: RHEUMATOID ARTHRITIS
     Dosage: 40 MG, 1 IN 2 WK, SUBCUTANEOUS
     Route: 058
     Dates: start: 20030101, end: 20030101
  2. HUMIRA [Suspect]
     Indication: RHEUMATOID ARTHRITIS
     Dosage: 40 MG, 1 IN 2 WK, SUBCUTANEOUS
     Route: 058
     Dates: start: 20030101
  3. HYDROXYCHLOROQUINE PHOSPHATE [Concomitant]
  4. VICODIN [Concomitant]
  5. LEVOTHYROXINE SODIUM [Concomitant]
  6. FLUOXETINE HYDROCHLORIDE [Concomitant]
  7. ACARBOSE [Concomitant]
  8. DOFAMIUM CHLORIDE [Concomitant]
  9. QUETIAPINE [Concomitant]
  10. OBETROL [Concomitant]
  11. GABAPENTIN [Concomitant]
  12. MORPHINE SULFATE [Concomitant]
  13. SPIRONOLACTONE [Concomitant]

REACTIONS (2)
  - DRUG INEFFECTIVE [None]
  - NASOPHARYNGITIS [None]
